FAERS Safety Report 5783334-8 (Version None)
Quarter: 2008Q2

REPORT INFORMATION
  Report Type: 
  Country: None (occurrence: None)
  Receive Date: 20080624
  Receipt Date: 20080619
  Transmission Date: 20081010
  Serious: Yes (Life-Threatening)
  Sender: FDA-Public Use
  Company Number: DE-BAYER-200820821GPV

PATIENT
  Age: 86 Year
  Sex: Male
  Weight: 62 kg

DRUGS (1)
  1. AVELOX [Suspect]
     Indication: INFECTION PROPHYLAXIS
     Route: 042
     Dates: start: 20080425, end: 20080425

REACTIONS (1)
  - BLOOD PRESSURE DECREASED [None]
